FAERS Safety Report 7483220-1 (Version None)
Quarter: 2011Q2

REPORT INFORMATION
  Report Type: 
  Country: None (occurrence: None)
  Receive Date: 20110516
  Receipt Date: 20100902
  Transmission Date: 20111010
  Serious: No
  Sender: FDA-Public Use
  Company Number: US-ALLERGAN-1011376US

PATIENT
  Age: 43 Year
  Sex: Female

DRUGS (1)
  1. ZYMAR [Suspect]
     Indication: ULCERATIVE KERATITIS
     Dosage: 1 GTT, Q1/2HR
     Route: 047
     Dates: start: 20100714, end: 20100715

REACTIONS (1)
  - VISION BLURRED [None]
